FAERS Safety Report 22085091 (Version 2)
Quarter: 2023Q1

REPORT INFORMATION
  Report Type: Spontaneous
  Country: GB (occurrence: GB)
  Receive Date: 20230310
  Receipt Date: 20230317
  Transmission Date: 20230417
  Serious: Yes (Other)
  Sender: FDA-Public Use
  Company Number: GB-AstraZeneca-2023A040163

PATIENT
  Sex: Female

DRUGS (10)
  1. FULVESTRANT [Suspect]
     Active Substance: FULVESTRANT
     Indication: Product used for unknown indication
     Dosage: PREFILLED SYRINGE
     Route: 030
     Dates: start: 202108
  2. OMEPRAZOLE [Suspect]
     Active Substance: OMEPRAZOLE
     Indication: Product used for unknown indication
     Route: 048
  3. GOSERELIN [Suspect]
     Active Substance: GOSERELIN
     Indication: Product used for unknown indication
     Route: 058
     Dates: start: 201710
  4. TAMOXIFEN [Suspect]
     Active Substance: TAMOXIFEN
     Indication: Product used for unknown indication
     Route: 048
     Dates: start: 201206
  5. TERBUTALINE SULFATE [Suspect]
     Active Substance: TERBUTALINE SULFATE
     Indication: Product used for unknown indication
     Route: 055
  6. LETROZOLE [Suspect]
     Active Substance: LETROZOLE
     Indication: Product used for unknown indication
     Dosage: PLANNED FOR 10 YEARS
     Dates: start: 201711
  7. UNSPECIFIED INGREDIENT [Suspect]
     Active Substance: UNSPECIFIED INGREDIENT
     Indication: Product used for unknown indication
     Dates: start: 201711
  8. IBANDRONATE SODIUM [Suspect]
     Active Substance: IBANDRONATE SODIUM
     Indication: Product used for unknown indication
     Dosage: 3 YEARS
     Dates: start: 201711
  9. EXEMESTANE [Suspect]
     Active Substance: EXEMESTANE
     Indication: Product used for unknown indication
     Dates: start: 201808
  10. PALBOCICLIB [Suspect]
     Active Substance: PALBOCICLIB
     Indication: Product used for unknown indication
     Dates: start: 202108

REACTIONS (4)
  - Malignant neoplasm progression [Unknown]
  - Diarrhoea [Unknown]
  - Fatigue [Unknown]
  - Rash [Unknown]

NARRATIVE: CASE EVENT DATE: 20211201
